FAERS Safety Report 7090264-0 (Version None)
Quarter: 2010Q4

REPORT INFORMATION
  Report Type: 
  Country: None (occurrence: None)
  Receive Date: 20101105
  Receipt Date: 20101105
  Transmission Date: 20110411
  Serious: Yes (Hospitalization)
  Sender: FDA-Public Use
  Company Number: None

PATIENT
  Age: 34 Year
  Sex: Female
  Weight: 63.5036 kg

DRUGS (1)
  1. NEOSPORIN [Suspect]
     Indication: NASAL DISCOMFORT
     Dosage: 1 TIME

REACTIONS (2)
  - ANAPHYLACTIC REACTION [None]
  - SINUS TACHYCARDIA [None]
